FAERS Safety Report 21743972 (Version 1)
Quarter: 2022Q4

REPORT INFORMATION
  Report Type: Spontaneous
  Country: US (occurrence: US)
  Receive Date: 20221217
  Receipt Date: 20221217
  Transmission Date: 20230113
  Serious: No
  Sender: FDA-Public Use
  Company Number: US-JNJFOC-20221226768

PATIENT
  Sex: Female

DRUGS (1)
  1. ZYRTEC [Suspect]
     Active Substance: CETIRIZINE HYDROCHLORIDE
     Indication: Multiple allergies
     Dosage: ZYRTEC 10MG AT 6PM AND AGAIN AT 9AM, 15 HOURS LATER.
     Route: 065
     Dates: start: 20221209

REACTIONS (2)
  - Anxiety [Not Recovered/Not Resolved]
  - Overdose [Unknown]

NARRATIVE: CASE EVENT DATE: 20221210
